FAERS Safety Report 5077890-5 (Version None)
Quarter: 2006Q3

REPORT INFORMATION
  Report Type: 
  Country: None (occurrence: None)
  Receive Date: 20060720
  Receipt Date: 20050722
  Transmission Date: 20061208
  Serious: Yes (Other)
  Sender: FDA-Public Use
  Company Number: 05GER0167

PATIENT
  Sex: Male

DRUGS (7)
  1. AGGRASTAT [Suspect]
     Indication: DRUG USE FOR UNKNOWN INDICATION
     Dosage: 10 ML/H
     Dates: start: 20050721, end: 20050722
  2. ASPIRIN [Concomitant]
  3. ATORVASTATIN CALCIUM [Concomitant]
  4. CLOPIDOGREL BISULFATE [Concomitant]
  5. HEPARIN SODIUM [Concomitant]
  6. METOPROLOL TARTRATE [Concomitant]
  7. RAMIPRIL [Concomitant]

REACTIONS (2)
  - SKIN HAEMORRHAGE [None]
  - THROMBOCYTOPENIA [None]
